FAERS Safety Report 5074186-2 (Version None)
Quarter: 2006Q3

REPORT INFORMATION
  Report Type: 
  Country: None (occurrence: None)
  Receive Date: 20060803
  Receipt Date: 20060725
  Transmission Date: 20061208
  Serious: Yes (Hospitalization)
  Sender: FDA-Public Use
  Company Number: 2006-04120

PATIENT
  Age: 71 Year
  Sex: Female

DRUGS (2)
  1. PINDOLOL [Suspect]
     Indication: HYPERTENSION
     Dosage: 15 MG, DAILY, ORAL
     Route: 048
     Dates: start: 20030401, end: 20060401
  2. CILAZAPRIL (CILAZAPRIL) [Concomitant]

REACTIONS (2)
  - ANGIONEUROTIC OEDEMA [None]
  - DRUG HYPERSENSITIVITY [None]
